FAERS Safety Report 14873189 (Version 1)
Quarter: 2018Q2

REPORT INFORMATION
  Report Type: Spontaneous
  Country: US (occurrence: US)
  Receive Date: 20180424
  Receipt Date: 20180424
  Transmission Date: 20180711
  Serious: No
  Sender: FDA-Public Use
  Company Number: None

PATIENT
  Age: 59 Year
  Sex: Male

DRUGS (1)
  1. MAVYRET [Suspect]
     Active Substance: GLECAPREVIR\PIBRENTASVIR
     Indication: HEPATITIS C
     Dosage: 100-400MG DAILY PO
     Route: 048
     Dates: start: 20180406

REACTIONS (2)
  - Hallucination [None]
  - Sleep talking [None]

NARRATIVE: CASE EVENT DATE: 20180413
